FAERS Safety Report 20403745 (Version 1)
Quarter: 2022Q1

REPORT INFORMATION
  Report Type: Spontaneous
  Country: US (occurrence: US)
  Receive Date: 20220131
  Receipt Date: 20220131
  Transmission Date: 20220423
  Serious: No
  Sender: FDA-Public Use
  Company Number: US-BoehringerIngelheim-2022-BI-151005

PATIENT

DRUGS (2)
  1. MOBIC [Suspect]
     Active Substance: MELOXICAM
     Indication: Arthritis
  2. Alieve [Concomitant]
     Indication: Product used for unknown indication

REACTIONS (2)
  - Depression [Unknown]
  - Feeling abnormal [Unknown]
